FAERS Safety Report 6715463-6 (Version None)
Quarter: 2010Q2

REPORT INFORMATION
  Report Type: 
  Country: None (occurrence: None)
  Receive Date: 20100507
  Receipt Date: 20100423
  Transmission Date: 20101027
  Serious: Yes (Other)
  Sender: FDA-Public Use
  Company Number: PHHY2010US26389

PATIENT
  Sex: Male

DRUGS (9)
  1. ZOMETA [Suspect]
     Indication: MULTIPLE MYELOMA
     Dosage: 3 MG, 8 DOSES
     Route: 042
     Dates: start: 20080927, end: 20090601
  2. REVLIMID [Concomitant]
     Dosage: 25 MG CAPS, 1 DAILY
     Route: 048
     Dates: start: 20081223
  3. ASPIRIN [Concomitant]
     Dosage: 1, DAILY
     Route: 048
  4. DEXAMETHASONE [Concomitant]
     Dosage: 10 TABS, ONCE A WEEK
     Route: 048
     Dates: start: 20100104
  5. KLOR-CON [Concomitant]
     Dosage: ONE DAILY
     Route: 048
     Dates: start: 20091130
  6. VITAMIN D [Concomitant]
     Dosage: 50000 IU WEEKLY
     Route: 048
     Dates: start: 20100120
  7. PERCOCET [Concomitant]
     Dosage: 1-2, TWO TIMES DAILY, AS NEEDED
     Dates: start: 20100330
  8. DECADRON [Concomitant]
     Dosage: 40 MG, UNK
  9. VELCADE [Concomitant]
     Dosage: UNK
     Dates: start: 20100312

REACTIONS (6)
  - BACK PAIN [None]
  - CONSTIPATION [None]
  - INCREASED APPETITE [None]
  - OSTEONECROSIS OF JAW [None]
  - PARAESTHESIA [None]
  - WEIGHT INCREASED [None]
